FAERS Safety Report 9881866 (Version 1)
Quarter: 2014Q1

REPORT INFORMATION
  Report Type: Spontaneous
  Country: US (occurrence: US)
  Receive Date: 20140207
  Receipt Date: 20140207
  Transmission Date: 20141002
  Serious: Yes (Other)
  Sender: FDA-Public Use
  Company Number: US-SA-2014SA014560

PATIENT
  Age: 47 Year
  Sex: Female

DRUGS (1)
  1. CEREZYME [Suspect]
     Indication: GAUCHER^S DISEASE
     Route: 042

REACTIONS (9)
  - Haematochezia [Unknown]
  - Lymphadenopathy [Unknown]
  - Panic attack [Unknown]
  - Hepatic pain [Unknown]
  - Oesophageal pain [Unknown]
  - Faeces discoloured [Unknown]
  - Pain [Recovered/Resolved]
  - Body temperature increased [Recovered/Resolved]
  - Abdominal pain [Unknown]
